FAERS Safety Report 4513430-4 (Version None)
Quarter: 2004Q4

REPORT INFORMATION
  Report Type: 
  Country: None (occurrence: None)
  Receive Date: 20041130
  Receipt Date: 20040930
  Transmission Date: 20050328
  Serious: No
  Sender: FDA-Public Use
  Company Number: US-BRISTOL-MYERS SQUIBB COMPANY-12718292

PATIENT
  Sex: Male

DRUGS (8)
  1. ERBITUX [Suspect]
     Indication: COLORECTAL CANCER METASTATIC
     Dosage: 1ST INFUSION
     Route: 042
     Dates: start: 20040922, end: 20040922
  2. DECADRON [Concomitant]
     Indication: PREMEDICATION
  3. ANZEMET [Concomitant]
     Indication: PREMEDICATION
  4. BENADRYL [Concomitant]
     Indication: PREMEDICATION
  5. TYLENOL (CAPLET) [Concomitant]
     Indication: PREMEDICATION
  6. ZANTAC [Concomitant]
     Indication: PREMEDICATION
  7. CELEBREX [Concomitant]
  8. OXYCODONE HCL [Concomitant]

REACTIONS (2)
  - PAIN OF SKIN [None]
  - RASH PUSTULAR [None]
